FAERS Safety Report 11375070 (Version 3)
Quarter: 2018Q3

REPORT INFORMATION
  Report Type: Spontaneous
  Country: US (occurrence: US)
  Receive Date: 20150813
  Receipt Date: 20180705
  Transmission Date: 20181010
  Serious: Yes (Disabling)
  Sender: FDA-Public Use
  Company Number: US-MERCK-1508USA003770

PATIENT
  Age: 73 Year
  Sex: Male
  Weight: 97.51 kg

DRUGS (9)
  1. OMEGA?3 MARINE TRIGLYCERIDES [Concomitant]
     Active Substance: FISH OIL
     Dosage: UNK
  2. BELSOMRA [Suspect]
     Active Substance: SUVOREXANT
     Indication: SLEEP APNOEA SYNDROME
  3. PROTONIX [Concomitant]
     Active Substance: PANTOPRAZOLE SODIUM
     Dosage: UNK
  4. ZANTAC [Concomitant]
     Active Substance: RANITIDINE HYDROCHLORIDE
     Dosage: UNK
  5. LIPOCHOL PLUS [Concomitant]
     Dosage: UNK
  6. AVALIDE [Concomitant]
     Active Substance: HYDROCHLOROTHIAZIDE\IRBESARTAN
     Dosage: UNK
  7. FLAXSEED [Concomitant]
     Active Substance: FLAX SEED
     Dosage: UNK
  8. BELSOMRA [Suspect]
     Active Substance: SUVOREXANT
     Indication: INSOMNIA
     Dosage: 1 PILL AT BEDTIME
     Route: 048
     Dates: start: 20150519, end: 20150520
  9. ZINC (UNSPECIFIED) [Concomitant]
     Active Substance: ZINC
     Dosage: UNK

REACTIONS (9)
  - Aggression [Recovering/Resolving]
  - Abnormal sleep-related event [Recovering/Resolving]
  - Irritability [Recovering/Resolving]
  - Impaired driving ability [Recovering/Resolving]
  - Dyspnoea [Recovering/Resolving]
  - Drug ineffective [Recovering/Resolving]
  - Psychomotor hyperactivity [Recovering/Resolving]
  - Asthenia [Recovering/Resolving]
  - Abnormal behaviour [Recovering/Resolving]

NARRATIVE: CASE EVENT DATE: 20150519
